FAERS Safety Report 23778004 (Version 1)
Quarter: 2024Q2

REPORT INFORMATION
  Report Type: Spontaneous
  Country: US (occurrence: US)
  Receive Date: 20240424
  Receipt Date: 20240424
  Transmission Date: 20240715
  Serious: No
  Sender: FDA-Public Use
  Company Number: US-PFIZER INC-202400092620

PATIENT
  Age: 49 Year
  Sex: Male

DRUGS (2)
  1. CIBINQO [Suspect]
     Active Substance: ABROCITINIB
     Indication: Eczema
     Dosage: QD (EVERY DAY) FOR 1 MONTH AND NOTICED MILD RELIEF
     Dates: end: 202404
  2. CIBINQO [Suspect]
     Active Substance: ABROCITINIB
     Dosage: 100 MG, 2X/DAY(BID, WILL START IN 6 WEEKS)

REACTIONS (2)
  - Skin burning sensation [Unknown]
  - Drug ineffective [Unknown]
